FAERS Safety Report 15210995 (Version 1)
Quarter: 2018Q3

REPORT INFORMATION
  Report Type: Spontaneous
  Country: US (occurrence: US)
  Receive Date: 20180728
  Receipt Date: 20180728
  Transmission Date: 20181010
  Serious: No
  Sender: FDA-Public Use
  Company Number: US-JNJFOC-20180709955

PATIENT
  Age: 16 Month
  Sex: Female

DRUGS (1)
  1. INFANTS TYLENOL [Suspect]
     Active Substance: ACETAMINOPHEN
     Indication: PRODUCT USED FOR UNKNOWN INDICATION
     Route: 048
     Dates: start: 20180706, end: 20180706

REACTIONS (2)
  - Drug hypersensitivity [Unknown]
  - Vomiting [Unknown]

NARRATIVE: CASE EVENT DATE: 20180706
